FAERS Safety Report 9560103 (Version 2)
Quarter: 2013Q4

REPORT INFORMATION
  Report Type: Spontaneous
  Country: IT (occurrence: None)
  Receive Date: 20130925
  Receipt Date: 20131122
  Transmission Date: 20140711
  Serious: Yes (Life-Threatening)
  Sender: FDA-Public Use
  Company Number: SYM-2013-10919

PATIENT
  Age: 57 Year
  Sex: Male

DRUGS (5)
  1. 5 FU [Suspect]
     Indication: COLORECTAL CANCER METASTATIC
     Route: 040
     Dates: start: 20130731, end: 20130731
  2. AFLIBERCEPT [Suspect]
     Indication: COLORECTAL CANCER METASTATIC
     Route: 042
     Dates: start: 20130731, end: 20130731
  3. IRINOTECAN [Suspect]
     Indication: COLORECTAL CANCER METASTATIC
     Route: 042
     Dates: start: 20130731, end: 20130731
  4. LEUCOVORIN [Suspect]
     Indication: COLORECTAL CANCER METASTATIC
     Route: 042
     Dates: start: 20130731, end: 20130731
  5. G-CSF(GRANULOCYTE COLONY STIMULATING FACTOR)(GRANULOCYTE COLONY STIMULATING FACTOR) [Concomitant]

REACTIONS (3)
  - Haematemesis [None]
  - Melaena [None]
  - Anaemia [None]
